FAERS Safety Report 4809310-7 (Version None)
Quarter: 2005Q4

REPORT INFORMATION
  Report Type: 
  Country: None (occurrence: None)
  Receive Date: 20051021
  Receipt Date: 20011203
  Transmission Date: 20060501
  Serious: No
  Sender: FDA-Public Use
  Company Number: USA011210048

PATIENT
  Age: 55 Year
  Sex: Female

DRUGS (5)
  1. ZYPREXA [Suspect]
     Indication: PSYCHOTIC DISORDER
     Dosage: 30 MG/DAY
  2. FOLIC ACID [Concomitant]
  3. MULTI-VITAMIN [Concomitant]
  4. SYNTHROID [Concomitant]
  5. CATAPRES [Concomitant]

REACTIONS (2)
  - PRESCRIBED OVERDOSE [None]
  - WHITE BLOOD CELL COUNT DECREASED [None]
